FAERS Safety Report 5691097-X (Version None)
Quarter: 2008Q2

REPORT INFORMATION
  Report Type: 
  Country: None (occurrence: None)
  Receive Date: 20080401
  Receipt Date: 20080326
  Transmission Date: 20081010
  Serious: Yes (Other)
  Sender: FDA-Public Use
  Company Number: US-BOEHRINGER INGELHEIM GMBH, GERMANY-2008-BP-04727BP

PATIENT
  Sex: Male

DRUGS (3)
  1. SPIRIVA [Suspect]
  2. ALBUTEROL [Concomitant]
  3. FISH OIL [Concomitant]

REACTIONS (4)
  - DRY MOUTH [None]
  - HEADACHE [None]
  - LEUKAEMIA [None]
  - RETINAL DETACHMENT [None]
